FAERS Safety Report 5743667-8 (Version None)
Quarter: 2008Q2

REPORT INFORMATION
  Report Type: 
  Country: None (occurrence: None)
  Receive Date: 20080516
  Receipt Date: 20080507
  Transmission Date: 20081010
  Serious: Yes (Hospitalization)
  Sender: FDA-Public Use
  Company Number: 2008S1005745

PATIENT
  Age: 50 Year
  Sex: Female

DRUGS (7)
  1. PHENYTOIN SODIUM [Suspect]
     Indication: GRAND MAL CONVULSION
     Dosage: 300 MG; DAILY; ORAL ; 400 MG; DAILY; ORAL
     Route: 048
     Dates: start: 20080311, end: 20080316
  2. PHENYTOIN SODIUM [Suspect]
     Indication: GRAND MAL CONVULSION
     Dosage: 300 MG; DAILY; ORAL ; 400 MG; DAILY; ORAL
     Route: 048
     Dates: start: 20080317
  3. INSULIN INJECTION [Concomitant]
  4. ARTHROTEC /00372302/ [Concomitant]
  5. LEVEMIR [Concomitant]
  6. VALIUM [Concomitant]
  7. VICODIN [Concomitant]

REACTIONS (9)
  - AMNESIA [None]
  - ANTICONVULSANT DRUG LEVEL BELOW THERAPEUTIC [None]
  - ATAXIA [None]
  - CONDITION AGGRAVATED [None]
  - CONVULSION [None]
  - DYSPHAGIA [None]
  - FALL [None]
  - HEAD INJURY [None]
  - TREMOR [None]
